FAERS Safety Report 5884623-9 (Version None)
Quarter: 2008Q3

REPORT INFORMATION
  Report Type: 
  Country: None (occurrence: None)
  Receive Date: 20080916
  Receipt Date: 20080916
  Transmission Date: 20090109
  Serious: Yes (Hospitalization)
  Sender: FDA-Public Use
  Company Number: None

PATIENT
  Age: 84 Year
  Sex: Male
  Weight: 55 kg

DRUGS (1)
  1. DEXTROSE / HEPARIN [Suspect]
     Indication: ATRIAL FIBRILLATION
     Dosage: 700 UNITS PER HOUR IV
     Route: 042
     Dates: start: 20080726, end: 20080817

REACTIONS (6)
  - ACTIVATED PARTIAL THROMBOPLASTIN TIME PROLONGED [None]
  - HAEMOGLOBIN DECREASED [None]
  - HYPOTENSION [None]
  - LETHARGY [None]
  - MENTAL STATUS CHANGES [None]
  - RETROPERITONEAL HAEMORRHAGE [None]
